FAERS Safety Report 13734463 (Version 5)
Quarter: 2017Q3

REPORT INFORMATION
  Report Type: Report from Study
  Country: US (occurrence: US)
  Receive Date: 20170709
  Receipt Date: 20170906
  Transmission Date: 20171127
  Serious: Yes (Hospitalization, Other)
  Sender: FDA-Public Use
  Company Number: US-ALEXION PHARMACEUTICALS INC.-A201707303

PATIENT
  Sex: Female

DRUGS (2)
  1. COUMADIN [Concomitant]
     Active Substance: WARFARIN SODIUM
     Indication: PRODUCT USED FOR UNKNOWN INDICATION
     Route: 065
  2. SOLIRIS [Suspect]
     Active Substance: ECULIZUMAB
     Indication: PAROXYSMAL NOCTURNAL HAEMOGLOBINURIA
     Dosage: UNK
     Route: 042

REACTIONS (10)
  - International normalised ratio abnormal [Unknown]
  - Urticaria [Unknown]
  - Oedema [Unknown]
  - Cellulitis [Recovered/Resolved]
  - Peripheral swelling [Unknown]
  - Abscess [Unknown]
  - Platelet count decreased [Unknown]
  - Menorrhagia [Unknown]
  - Haemoglobin decreased [Unknown]
  - Arthropod bite [Unknown]

NARRATIVE: CASE EVENT DATE: 20170711
